FAERS Safety Report 9349435 (Version 2)
Quarter: 2013Q2

REPORT INFORMATION
  Report Type: Spontaneous
  Country: FR (occurrence: FR)
  Receive Date: 20130614
  Receipt Date: 20130627
  Transmission Date: 20140414
  Serious: Yes (Other)
  Sender: FDA-Public Use
  Company Number: FR-BAXTER-2013BAX021234

PATIENT
  Age: 57 Year
  Sex: Male
  Weight: 72 kg

DRUGS (4)
  1. DIANEAL PD4 GLUCOSE 1,36%, SOLUTION POUR DIALYSE P?RITON?AL EN POCHE [Suspect]
     Indication: PERITONEAL DIALYSIS
     Route: 033
     Dates: start: 20130404
  2. DIANEAL PD4 GLUCOSE 1,36%, SOLUTION POUR DIALYSE P?RITON?AL EN POCHE [Suspect]
     Route: 033
     Dates: start: 20111219
  3. EXTRANEAL, SOLUTION POUR DIALYSE P?RITON?ALE [Suspect]
     Indication: PERITONEAL DIALYSIS
     Route: 033
     Dates: start: 20111219, end: 20130411
  4. EXTRANEAL, SOLUTION POUR DIALYSE P?RITON?ALE [Suspect]
     Indication: FLUID OVERLOAD
     Route: 033
     Dates: start: 20130404

REACTIONS (1)
  - Noninfectious peritonitis [Recovered/Resolved]
